FAERS Safety Report 7432215-2 (Version None)
Quarter: 2011Q2

REPORT INFORMATION
  Report Type: 
  Country: None (occurrence: None)
  Receive Date: 20110422
  Receipt Date: 20110413
  Transmission Date: 20111010
  Serious: Yes (Hospitalization)
  Sender: FDA-Public Use
  Company Number: US-BAXTER-2011BH008015

PATIENT
  Age: 81 Year
  Sex: Male

DRUGS (1)
  1. DIANEAL [Suspect]
     Indication: PERITONEAL DIALYSIS
     Route: 033
     Dates: end: 20110101

REACTIONS (5)
  - PERITONITIS BACTERIAL [None]
  - CARDIAC DISORDER [None]
  - PYREXIA [None]
  - MALAISE [None]
  - PERITONEAL DIALYSIS COMPLICATION [None]
